FAERS Safety Report 8327527-4 (Version None)
Quarter: 2012Q2

REPORT INFORMATION
  Report Type: 
  Country: None (occurrence: None)
  Receive Date: 20120502
  Receipt Date: 20120425
  Transmission Date: 20120825
  Serious: Yes (Life-Threatening, Other)
  Sender: FDA-Public Use
  Company Number: CA-BAYER-2012-022032

PATIENT
  Age: 59 Year
  Sex: Female
  Weight: 62 kg

DRUGS (8)
  1. HEPARIN [Concomitant]
  2. PROPRANOLOL [Concomitant]
     Dosage: 40 MG, UNK
  3. DRIXINE [Concomitant]
  4. METOPROLOL TARTRATE [Concomitant]
     Dosage: 5 MG, UNK
  5. ANCEF [Concomitant]
     Dosage: 1 G, UNK
  6. TRASYLOL [Suspect]
     Indication: CORONARY ARTERY BYPASS
     Dosage: 5X105/H, 300 ML, 1000UI/ML
     Route: 042
     Dates: start: 20041115, end: 20041115
  7. LASIX [Concomitant]
     Dosage: 10 MG, UNK
  8. VASOPRESSIN [Concomitant]

REACTIONS (4)
  - MEDIASTINAL HAEMORRHAGE [None]
  - HAEMOTHORAX [None]
  - HAEMORRHAGE [None]
  - ARTERIAL HAEMORRHAGE [None]
